FAERS Safety Report 26191443 (Version 1)
Quarter: 2025Q4

REPORT INFORMATION
  Report Type: Spontaneous
  Country: CN (occurrence: CN)
  Receive Date: 20251223
  Receipt Date: 20251223
  Transmission Date: 20260117
  Serious: Yes (Hospitalization, Disabling, Other)
  Sender: SANOFI AVENTIS
  Company Number: CN-SA-2025SA377306

PATIENT
  Age: 57 Year
  Sex: Male
  Weight: 77 kg

DRUGS (15)
  1. ELOXATIN [Suspect]
     Active Substance: OXALIPLATIN
     Indication: Colon cancer
     Dosage: 150 MG, QD
     Route: 041
     Dates: start: 20250930, end: 20250930
  2. ELOXATIN [Suspect]
     Active Substance: OXALIPLATIN
     Indication: Metastases to lymph nodes
  3. ELOXATIN [Suspect]
     Active Substance: OXALIPLATIN
     Indication: Metastases to lung
  4. ELOXATIN [Suspect]
     Active Substance: OXALIPLATIN
     Indication: Neoplasm malignant
  5. ELOXATIN [Suspect]
     Active Substance: OXALIPLATIN
     Indication: Bundle branch block right
  6. FLUOROURACIL [Suspect]
     Active Substance: FLUOROURACIL
     Indication: Colon cancer
     Dosage: 0.5 G, QD
     Route: 041
     Dates: start: 20250930, end: 20250930
  7. FLUOROURACIL [Suspect]
     Active Substance: FLUOROURACIL
     Indication: Metastases to lymph nodes
     Dosage: 4 G, QD (46-48 H)
     Route: 042
     Dates: start: 20250930, end: 20250930
  8. FLUOROURACIL [Suspect]
     Active Substance: FLUOROURACIL
     Indication: Metastases to lung
  9. FLUOROURACIL [Suspect]
     Active Substance: FLUOROURACIL
     Indication: Neoplasm malignant
  10. FLUOROURACIL [Suspect]
     Active Substance: FLUOROURACIL
     Indication: Bundle branch block right
  11. LEUCOVORIN CALCIUM [Suspect]
     Active Substance: LEUCOVORIN CALCIUM
     Indication: Colon cancer
     Dosage: 600 MG, QD
     Route: 041
     Dates: start: 20250930, end: 20250930
  12. LEUCOVORIN CALCIUM [Suspect]
     Active Substance: LEUCOVORIN CALCIUM
     Indication: Metastases to lymph nodes
  13. LEUCOVORIN CALCIUM [Suspect]
     Active Substance: LEUCOVORIN CALCIUM
     Indication: Metastases to lung
  14. LEUCOVORIN CALCIUM [Suspect]
     Active Substance: LEUCOVORIN CALCIUM
     Indication: Neoplasm malignant
  15. LEUCOVORIN CALCIUM [Suspect]
     Active Substance: LEUCOVORIN CALCIUM
     Indication: Bundle branch block right

REACTIONS (11)
  - Cardiac failure [Unknown]
  - Acute pulmonary oedema [Unknown]
  - Acute kidney injury [Recovering/Resolving]
  - Tubulointerstitial nephritis [Unknown]
  - Renal tubular necrosis [Unknown]
  - Pneumonia [Unknown]
  - Temperature intolerance [Unknown]
  - Abdominal distension [Unknown]
  - Pyrexia [Unknown]
  - Productive cough [Unknown]
  - Blood creatinine increased [Recovering/Resolving]

NARRATIVE: CASE EVENT DATE: 20251009
